FAERS Safety Report 20086820 (Version 1)
Quarter: 2021Q4

REPORT INFORMATION
  Report Type: Other
  Country: PT (occurrence: None)
  Receive Date: 20211118
  Receipt Date: 20211118
  Transmission Date: 20220304
  Serious: Yes (Other)
  Sender: FDA-Public Use
  Company Number: PT-ROCHE-2957987

PATIENT
  Age: 23 Year
  Sex: Male
  Weight: 78 kg

DRUGS (1)
  1. MYCOPHENOLATE MOFETIL [Suspect]
     Active Substance: MYCOPHENOLATE MOFETIL
     Indication: Hypothyroidism
     Route: 065

REACTIONS (4)
  - Cellulitis [Unknown]
  - Generalised oedema [Unknown]
  - Renal impairment [Unknown]
  - Hypoalbuminaemia [Unknown]
